FAERS Safety Report 14285560 (Version 1)
Quarter: 2017Q4

REPORT INFORMATION
  Report Type: Spontaneous
  Country: US (occurrence: US)
  Receive Date: 20171214
  Receipt Date: 20171214
  Transmission Date: 20180321
  Serious: No
  Sender: FDA-Public Use
  Company Number: US-PFIZER INC-2017534974

PATIENT
  Age: 58 Year
  Sex: Female
  Weight: 89 kg

DRUGS (1)
  1. ATROPINE SULFATE/DIPHENOXYLATE HYDROCHLORIDE [Suspect]
     Active Substance: ATROPINE SULFATE\DIPHENOXYLATE HYDROCHLORIDE
     Indication: DIARRHOEA
     Dosage: UNK UNK, 4X/DAY (AS NEEDED)
     Route: 048
     Dates: start: 20170728

REACTIONS (2)
  - Product use issue [Unknown]
  - Drug ineffective [Unknown]
